FAERS Safety Report 4315419-7 (Version None)
Quarter: 2004Q1

REPORT INFORMATION
  Report Type: 
  Country: None (occurrence: None)
  Receive Date: 20040310
  Receipt Date: 20040302
  Transmission Date: 20041129
  Serious: No
  Sender: FDA-Public Use
  Company Number: TPA2004A00202

PATIENT
  Age: 59 Year
  Sex: Male

DRUGS (6)
  1. PIOGLITAZONE HCL [Suspect]
     Indication: DIABETES MELLITUS NON-INSULIN-DEPENDENT
     Dosage: 30 MG, 1 IN 1 D, PER ORAL
     Route: 048
     Dates: start: 20031223
  2. METFORMIN (METFORMIN) (1500 MILLIGRAM) [Suspect]
     Dosage: 1500 MG, 1 IN  1 D, PER ORAL
     Route: 048
     Dates: start: 20030601
  3. PAXIL [Concomitant]
  4. LESCOL [Concomitant]
  5. ALBUTEROL [Concomitant]
  6. SINGULAIR (MONTELUKAST) [Concomitant]

REACTIONS (1)
  - ATRIAL FIBRILLATION [None]
